FAERS Safety Report 12538159 (Version 2)
Quarter: 2016Q3

REPORT INFORMATION
  Report Type: Spontaneous
  Country: US (occurrence: US)
  Receive Date: 20160707
  Receipt Date: 20160719
  Transmission Date: 20161109
  Serious: Yes (Other)
  Sender: FDA-Public Use
  Company Number: US-TEVA-673331USA

PATIENT
  Sex: Female

DRUGS (1)
  1. ZECUITY [Suspect]
     Active Substance: SUMATRIPTAN SUCCINATE
     Route: 062

REACTIONS (16)
  - Pain in extremity [Not Recovered/Not Resolved]
  - Application site scar [Not Recovered/Not Resolved]
  - Product adhesion issue [Unknown]
  - Application site erythema [Recovered/Resolved]
  - Application site inflammation [Recovered/Resolved]
  - Application site bruise [Recovered/Resolved]
  - Application site pruritus [Unknown]
  - Drug ineffective [Unknown]
  - Feeling abnormal [Unknown]
  - Application site irritation [Recovered/Resolved]
  - Application site dryness [Not Recovered/Not Resolved]
  - Product leakage [Unknown]
  - Incorrect drug administration duration [Unknown]
  - Application site discolouration [Not Recovered/Not Resolved]
  - Application site paraesthesia [Recovered/Resolved]
  - Musculoskeletal pain [Not Recovered/Not Resolved]
